FAERS Safety Report 24634332 (Version 1)
Quarter: 2024Q4

REPORT INFORMATION
  Report Type: Spontaneous
  Country: GB (occurrence: GB)
  Receive Date: 20241119
  Receipt Date: 20241119
  Transmission Date: 20250114
  Serious: Yes (Hospitalization, Disabling, Other)
  Sender: DR REDDYS
  Company Number: None

PATIENT
  Age: 70 Year
  Sex: Female
  Weight: 110 kg

DRUGS (2)
  1. MONTELUKAST [Suspect]
     Active Substance: MONTELUKAST
     Indication: Product used for unknown indication
     Dosage: THERAPY START DATE: 07-MAR-2022
     Route: 048
     Dates: end: 20220527
  2. ZOSTAVAX [Suspect]
     Active Substance: VARICELLA-ZOSTER VIRUS STRAIN OKA/MERCK LIVE ANTIGEN
     Indication: Prophylaxis
     Route: 058

REACTIONS (68)
  - Scar [Not Recovered/Not Resolved]
  - Henoch-Schonlein purpura [Recovering/Resolving]
  - Acute kidney injury [Unknown]
  - Anaphylactic reaction [Unknown]
  - Osteoarthritis [Unknown]
  - Diabetes mellitus [Unknown]
  - Renal injury [Unknown]
  - Type 2 diabetes mellitus [Unknown]
  - Diabetic neuropathy [Unknown]
  - Quality of life decreased [Unknown]
  - Peripheral swelling [Not Recovered/Not Resolved]
  - Illness [Not Recovered/Not Resolved]
  - Bite [Unknown]
  - Dermal cyst [Unknown]
  - Vulva cyst [Unknown]
  - Rash macular [Unknown]
  - Immune system disorder [Unknown]
  - Vaccination site mass [Unknown]
  - Rash [Unknown]
  - Adverse drug reaction [Unknown]
  - Escherichia urinary tract infection [Unknown]
  - Nausea [Unknown]
  - Vertigo [Unknown]
  - Vertigo [Unknown]
  - Tension headache [Unknown]
  - Abdominal pain [Unknown]
  - Vomiting [Unknown]
  - Illness [Unknown]
  - Diarrhoea [Recovered/Resolved]
  - Feeling of body temperature change [Unknown]
  - Diarrhoea [Unknown]
  - Urinary tract infection [Unknown]
  - Dysuria [Unknown]
  - Pollakiuria [Unknown]
  - Muscle spasms [Unknown]
  - Muscle tightness [Unknown]
  - Paraesthesia [Unknown]
  - Tendon discomfort [Unknown]
  - Tonsillitis [Unknown]
  - Feeling abnormal [Unknown]
  - Neck mass [Unknown]
  - Pruritus [Unknown]
  - Mean cell volume abnormal [Unknown]
  - Haematocrit abnormal [Unknown]
  - Neutrophil count abnormal [Unknown]
  - Mean cell haemoglobin decreased [Unknown]
  - White blood cell count abnormal [Unknown]
  - Red blood cell sedimentation rate increased [Unknown]
  - Immunoglobulins abnormal [Unknown]
  - Bursitis [Unknown]
  - Rotator cuff syndrome [Unknown]
  - Tenosynovitis [Unknown]
  - Mobility decreased [Unknown]
  - Immune system disorder [Unknown]
  - Hypoaesthesia [Unknown]
  - Limb discomfort [Unknown]
  - Limb deformity [Unknown]
  - Burning sensation [Unknown]
  - Vitamin D deficiency [Unknown]
  - Gait disturbance [Unknown]
  - Osteoporosis [Unknown]
  - Rash [Unknown]
  - Nasal cavity mass [Unknown]
  - Vulva cyst [Unknown]
  - Allergy to vaccine [Unknown]
  - Skin burning sensation [Unknown]
  - Bone contusion [Unknown]
  - Skin hyperpigmentation [Unknown]

NARRATIVE: CASE EVENT DATE: 20210101
